FAERS Safety Report 18191538 (Version 1)
Quarter: 2020Q3

REPORT INFORMATION
  Report Type: Spontaneous
  Country: US (occurrence: US)
  Receive Date: 20200824
  Receipt Date: 20200824
  Transmission Date: 20201103
  Serious: No
  Sender: FDA-Public Use
  Company Number: None

PATIENT
  Sex: Female

DRUGS (3)
  1. DEXTROAMPHETAMINE. [Suspect]
     Active Substance: DEXTROAMPHETAMINE
  2. LUVOX [Concomitant]
     Active Substance: FLUVOXAMINE MALEATE
  3. SYNTHROID [Concomitant]
     Active Substance: LEVOTHYROXINE SODIUM

REACTIONS (10)
  - Nausea [None]
  - Drug ineffective [None]
  - Vomiting [None]
  - Dizziness [None]
  - Headache [None]
  - Abdominal pain upper [None]
  - Feeling abnormal [None]
  - Muscle spasms [None]
  - Product substitution issue [None]
  - Somnolence [None]
